FAERS Safety Report 13256845 (Version 3)
Quarter: 2017Q2

REPORT INFORMATION
  Report Type: Spontaneous
  Country: US (occurrence: US)
  Receive Date: 20170221
  Receipt Date: 20170615
  Transmission Date: 20170830
  Serious: Yes (Hospitalization, Other)
  Sender: FDA-Public Use
  Company Number: US-SA-2017SA028679

PATIENT
  Age: 60 Year
  Sex: Male

DRUGS (2)
  1. PRALUENT [Suspect]
     Active Substance: ALIROCUMAB
     Indication: HYPERLIPIDAEMIA
     Route: 058
     Dates: start: 20161101
  2. ALIROCUMAB PREFILLED PEN [Concomitant]
     Active Substance: ALIROCUMAB
     Indication: HYPERLIPIDAEMIA
     Dates: start: 20161101

REACTIONS (10)
  - Wound infection [Unknown]
  - Cerebrovascular accident [Recovering/Resolving]
  - Vomiting [Recovering/Resolving]
  - Nausea [Recovering/Resolving]
  - Musculoskeletal disorder [Unknown]
  - Hemiplegia [Recovering/Resolving]
  - Diabetes mellitus [Recovering/Resolving]
  - Thrombosis [Recovering/Resolving]
  - Neuropathy peripheral [Unknown]
  - Limb injury [Unknown]

NARRATIVE: CASE EVENT DATE: 20170131
